FAERS Safety Report 19175653 (Version 1)
Quarter: 2021Q2

REPORT INFORMATION
  Report Type: Spontaneous
  Country: US (occurrence: US)
  Receive Date: 20210423
  Receipt Date: 20210423
  Transmission Date: 20210717
  Serious: No
  Sender: FDA-Public Use
  Company Number: US-LUPIN PHARMACEUTICALS INC.-2021-04474

PATIENT
  Age: 73 Year
  Sex: Female
  Weight: 69 kg

DRUGS (1)
  1. QUINAPRIL. [Suspect]
     Active Substance: QUINAPRIL
     Indication: HYPERTENSION
     Dosage: 20 MILLIGRAM, BID
     Route: 048

REACTIONS (2)
  - Nausea [Recovered/Resolved]
  - Alopecia [Recovered/Resolved]
